FAERS Safety Report 22650937 (Version 1)
Quarter: 2023Q2

REPORT INFORMATION
  Report Type: Spontaneous
  Country: DK (occurrence: DK)
  Receive Date: 20230628
  Receipt Date: 20230628
  Transmission Date: 20230722
  Serious: Yes (Hospitalization)
  Sender: FDA-Public Use
  Company Number: None

PATIENT
  Age: 56 Year
  Sex: Female

DRUGS (11)
  1. LOSARTANKALIUM/HYDROCHLORTHIAZID ^KRKA^ [Concomitant]
     Indication: Hypertension
     Dosage: UNK
     Dates: start: 20140214
  2. PANTOPRAZOLE SODIUM [Concomitant]
     Active Substance: PANTOPRAZOLE SODIUM
     Indication: Peptic ulcer
     Dosage: UNK
     Dates: start: 20230425
  3. PREGABALIN ^SANDOZ^ [Concomitant]
     Indication: Pain
     Dosage: UNK
     Dates: start: 20120605
  4. MAGNESIA ^MEDIC^ [Concomitant]
     Indication: Constipation
     Dosage: UNK
     Dates: start: 20230425
  5. ACETAMINOPHEN [Concomitant]
     Active Substance: ACETAMINOPHEN
     Indication: Pain
     Dosage: UNK
     Dates: start: 20170127
  6. METFORMIN HYDROCHLORIDE [Concomitant]
     Active Substance: METFORMIN HYDROCHLORIDE
     Indication: Type 2 diabetes mellitus
     Dosage: UNK
     Dates: start: 20200204
  7. OZEMPIC [Suspect]
     Active Substance: SEMAGLUTIDE
     Indication: Type 2 diabetes mellitus
     Dosage: 0.25 MG, QW
     Route: 058
     Dates: start: 20230314, end: 20230414
  8. RYBELSUS [Suspect]
     Active Substance: SEMAGLUTIDE
     Indication: Type 2 diabetes mellitus
     Dosage: 7 MG, QD
     Route: 048
     Dates: start: 20220307, end: 20230314
  9. BISACODYL [Concomitant]
     Active Substance: BISACODYL
     Indication: Constipation
     Dosage: UNK
     Dates: start: 20230425, end: 20230525
  10. COLGATE DURAPHAT [Concomitant]
     Active Substance: SODIUM FLUORIDE
     Indication: Dental caries
     Dosage: UNK
     Dates: start: 20211201
  11. ROSUVASTATIN ^KRKA D.D.^ [Concomitant]
     Indication: Hypercholesterolaemia
     Dosage: UNK
     Dates: start: 20201218

REACTIONS (5)
  - Encephalopathy [Unknown]
  - Aphasia [Unknown]
  - Neurosarcoidosis [Unknown]
  - Confusional state [Unknown]
  - Neuritis [Not Recovered/Not Resolved]

NARRATIVE: CASE EVENT DATE: 20230501
